FAERS Safety Report 8583929-2 (Version None)
Quarter: 2012Q3

REPORT INFORMATION
  Report Type: 
  Country: None (occurrence: None)
  Receive Date: 20120810
  Receipt Date: 20120803
  Transmission Date: 20120928
  Serious: Yes (Other)
  Sender: FDA-Public Use
  Company Number: DE-009507513-1208DEU001874

PATIENT

DRUGS (1)
  1. NOMEGESTROL ACETATE/ESTRADIOL [Suspect]
     Indication: CONTRACEPTION
     Route: 048

REACTIONS (2)
  - LIGAMENT RUPTURE [None]
  - PULMONARY EMBOLISM [None]
